FAERS Safety Report 12864772 (Version 1)
Quarter: 2016Q4

REPORT INFORMATION
  Report Type: Spontaneous
  Country: CH (occurrence: CH)
  Receive Date: 20161020
  Receipt Date: 20161020
  Transmission Date: 20170207
  Serious: Yes (Hospitalization)
  Sender: FDA-Public Use
  Company Number: CH-ROCHE-1843479

PATIENT
  Sex: Male

DRUGS (12)
  1. EZETROL [Suspect]
     Active Substance: EZETIMIBE
     Indication: PRODUCT USED FOR UNKNOWN INDICATION
     Route: 048
     Dates: end: 20160914
  2. CEFTRIAXONE. [Suspect]
     Active Substance: CEFTRIAXONE
     Indication: PRODUCT USED FOR UNKNOWN INDICATION
     Route: 041
     Dates: start: 20160916, end: 20160919
  3. ASPIRIN CARDIO [Concomitant]
     Active Substance: ASPIRIN
     Route: 048
  4. DISTRANEURIN [Concomitant]
     Active Substance: CLOMETHIAZOLE
     Route: 065
     Dates: start: 20160918, end: 20160923
  5. AMOXICILLIN. [Concomitant]
     Active Substance: AMOXICILLIN
     Route: 048
     Dates: start: 20160919, end: 20160920
  6. BELOC-ZOK [Concomitant]
     Active Substance: METOPROLOL SUCCINATE
     Route: 065
  7. QUETIAPIN [Suspect]
     Active Substance: QUETIAPINE
     Indication: PRODUCT USED FOR UNKNOWN INDICATION
     Route: 048
     Dates: start: 20160919, end: 20160923
  8. PRADIF [Concomitant]
     Active Substance: TAMSULOSIN HYDROCHLORIDE
     Route: 065
  9. ANXIOLIT [Concomitant]
     Active Substance: OXAZEPAM
     Route: 048
     Dates: start: 20160923, end: 20160923
  10. BACTRIM [Suspect]
     Active Substance: SULFAMETHOXAZOLE\TRIMETHOPRIM
     Indication: PRODUCT USED FOR UNKNOWN INDICATION
     Route: 048
     Dates: start: 20160920, end: 20160922
  11. CALCIPARINE [Concomitant]
     Active Substance: HEPARIN CALCIUM
     Route: 065
     Dates: start: 20160916, end: 20160926
  12. ESIDREX [Concomitant]
     Active Substance: HYDROCHLOROTHIAZIDE
     Route: 065

REACTIONS (1)
  - Hepatic function abnormal [Not Recovered/Not Resolved]
